FAERS Safety Report 11024685 (Version 1)
Quarter: 2015Q2

REPORT INFORMATION
  Report Type: Spontaneous
  Country: US (occurrence: None)
  Receive Date: 20150410
  Receipt Date: 20150410
  Transmission Date: 20150821
  Serious: Yes (Hospitalization)
  Sender: FDA-Public Use
  Company Number: SP09286

PATIENT
  Age: 73 Year
  Sex: Male

DRUGS (14)
  1. NOVOLOG [Concomitant]
     Active Substance: INSULIN ASPART
  2. DIGOXIN. [Concomitant]
     Active Substance: DIGOXIN
  3. MAGNESIUM [Concomitant]
     Active Substance: MAGNESIUM
  4. LEVEMIR [Concomitant]
     Active Substance: INSULIN DETEMIR
  5. FOLIC ACID. [Concomitant]
     Active Substance: FOLIC ACID
  6. CREON [Concomitant]
     Active Substance: PANCRELIPASE AMYLASE\PANCRELIPASE LIPASE\PANCRELIPASE PROTEASE
  7. VITAMIN B12 [Concomitant]
     Active Substance: CYANOCOBALAMIN
  8. POTASSIUM [Concomitant]
     Active Substance: POTASSIUM
  9. ALLOPURINOL. [Concomitant]
     Active Substance: ALLOPURINOL
  10. XIFAXAN [Suspect]
     Active Substance: RIFAXIMIN
     Indication: HEPATIC CIRRHOSIS
     Dosage: 1100 MG (559 MG, 2 IN 1 D), ORAL
     Route: 048
     Dates: start: 201501
  11. OXYCODONE [Concomitant]
     Active Substance: OXYCODONE
  12. VITAMIN B1 [Concomitant]
     Active Substance: THIAMINE HYDROCHLORIDE
  13. TORSEMIDE. [Concomitant]
     Active Substance: TORSEMIDE
  14. CALCIUM WITH VITAMIN D [Concomitant]
     Active Substance: CALCIUM\VITAMIN D

REACTIONS (2)
  - Peripheral swelling [None]
  - Cellulitis [None]

NARRATIVE: CASE EVENT DATE: 201503
